FAERS Safety Report 6512390-4 (Version None)
Quarter: 2009Q4

REPORT INFORMATION
  Report Type: 
  Country: None (occurrence: None)
  Receive Date: 20091222
  Receipt Date: 20091210
  Transmission Date: 20100525
  Serious: Yes (Hospitalization, Other)
  Sender: FDA-Public Use
  Company Number: US-ELI_LILLY_AND_COMPANY-US200911002731

PATIENT
  Sex: Male
  Weight: 121.3 kg

DRUGS (18)
  1. ADCIRCA [Suspect]
     Indication: PULMONARY ARTERIAL HYPERTENSION
     Dosage: 40 MG, DAILY (1/D)
     Dates: start: 20090818
  2. SPIRONOLACTONE [Concomitant]
     Indication: PULMONARY ARTERIAL HYPERTENSION
     Dosage: 100 MG, 2/D
  3. SPIRONOLACTONE [Concomitant]
     Dosage: 100 MG, DAILY (1/D)
     Dates: start: 20091001
  4. FUROSEMIDE [Concomitant]
     Indication: PULMONARY ARTERIAL HYPERTENSION
     Dosage: 160 MG, EACH MORNING
     Route: 048
  5. FUROSEMIDE [Concomitant]
     Dosage: 80 MG, EACH EVENING
  6. METFORMIN HCL [Concomitant]
     Indication: TYPE 2 DIABETES MELLITUS
     Route: 048
     Dates: start: 20091022
  7. METFORMIN HCL [Concomitant]
     Dosage: RESTART AT HALF DOSE
     Dates: start: 20091101
  8. METFORMIN HCL [Concomitant]
     Dosage: RESUME USUAL HOME REGIMEN
     Dates: start: 20091103
  9. JANUVIA [Concomitant]
     Indication: TYPE 2 DIABETES MELLITUS
     Dosage: UNK, UNK
     Route: 048
     Dates: start: 20091019
  10. JANUVIA [Concomitant]
     Dosage: RESTART AT HALF DOSE
     Dates: start: 20091101
  11. JANUVIA [Concomitant]
     Dosage: RESUME USUAL HOME REGIMEN
     Dates: start: 20091103
  12. OMEPRAZOLE [Concomitant]
     Indication: GASTROOESOPHAGEAL REFLUX DISEASE
     Dosage: 40 MG, UNK
     Route: 048
  13. ONDANSETRON [Concomitant]
     Indication: NAUSEA
     Dosage: 8 MG, DAILY (1/D)
     Route: 048
     Dates: start: 20090419
  14. KLOR-CON [Concomitant]
     Indication: HYPOGLYCAEMIA
     Dosage: 20 MEQ, DAILY (1/D)
     Route: 048
     Dates: start: 20081006
  15. TREPROSTINIL [Concomitant]
     Indication: PULMONARY ARTERIAL HYPERTENSION
     Dosage: 9.5 MG, 2/D
     Route: 042
     Dates: start: 20080627, end: 20091029
  16. TREPROSTINIL [Concomitant]
     Route: 042
     Dates: start: 20091031, end: 20091102
  17. TREPROSTINIL [Concomitant]
     Route: 048
     Dates: start: 20091102
  18. INSULIN [Concomitant]
     Dosage: SLIDING SCALE
     Dates: start: 20091101, end: 20091101

REACTIONS (6)
  - CONVULSION [None]
  - ENCEPHALOPATHY [None]
  - HEPATIC CYST [None]
  - HYPERAMMONAEMIA [None]
  - HYPOKALAEMIA [None]
  - RESPIRATORY FAILURE [None]
